FAERS Safety Report 6795303-X (Version None)
Quarter: 2010Q2

REPORT INFORMATION
  Report Type: 
  Country: None (occurrence: None)
  Receive Date: 20100625
  Receipt Date: 20100617
  Transmission Date: 20101027
  Serious: Yes (Hospitalization)
  Sender: FDA-Public Use
  Company Number: DE-ASTRAZENECA-2010SE28574

PATIENT
  Age: 20 Year
  Sex: Female

DRUGS (3)
  1. SEROQUEL [Suspect]
     Route: 048
     Dates: start: 20090901
  2. ANTIDEPRESSIVE MEDICATION [Concomitant]
  3. RISPERDAL [Concomitant]

REACTIONS (1)
  - BREAST MASS [None]
